FAERS Safety Report 9972262 (Version 1)
Quarter: 2014Q1

REPORT INFORMATION
  Report Type: Spontaneous
  Country: GB (occurrence: GB)
  Receive Date: 20140306
  Receipt Date: 20140306
  Transmission Date: 20141002
  Serious: Yes (Death)
  Sender: FDA-Public Use
  Company Number: PHFR2014GB001953

PATIENT
  Age: 59 Year
  Sex: Male

DRUGS (1)
  1. CLOZARIL [Suspect]
     Indication: SCHIZOPHRENIA
     Dosage: UNK UKN, UNK
     Route: 048
     Dates: start: 20140104

REACTIONS (3)
  - Lower respiratory tract infection [Fatal]
  - White blood cell count increased [Unknown]
  - Neutrophil count increased [Unknown]
